FAERS Safety Report 24856376 (Version 1)
Quarter: 2025Q1

REPORT INFORMATION
  Report Type: Spontaneous
  Country: CN (occurrence: CN)
  Receive Date: 20250117
  Receipt Date: 20250117
  Transmission Date: 20250409
  Serious: Yes (Hospitalization, Other)
  Sender: Unknown Manufacturer
  Company Number: CN-ASTRAZENECA-202501CHN004734CN

PATIENT

DRUGS (1)
  1. METOPROLOL SUCCINATE [Suspect]
     Active Substance: METOPROLOL SUCCINATE
     Indication: Electrocardiogram abnormal
     Dosage: 23.75 MILLIGRAM, QD
     Route: 048
     Dates: start: 20241212, end: 20241212

REACTIONS (3)
  - Arteriosclerosis coronary artery [Unknown]
  - Arrhythmia [Unknown]
  - Bradycardia [Unknown]

NARRATIVE: CASE EVENT DATE: 20241213
